FAERS Safety Report 7752664-2 (Version None)
Quarter: 2011Q3

REPORT INFORMATION
  Report Type: 
  Country: None (occurrence: None)
  Receive Date: 20110915
  Receipt Date: 20110907
  Transmission Date: 20111222
  Serious: Yes (Other)
  Sender: FDA-Public Use
  Company Number: US-UCBSA-016735

PATIENT
  Sex: Female
  Weight: 2.35 kg

DRUGS (7)
  1. NEURONTIN [Concomitant]
     Indication: CONVULSION
     Route: 064
     Dates: end: 20080707
  2. CYMBALTA [Concomitant]
     Indication: DEPRESSION
     Route: 064
     Dates: end: 20080707
  3. PRENATAL VITAMINS [Concomitant]
     Indication: PREGNANCY
     Route: 064
     Dates: start: 20071227, end: 20080707
  4. KEPPRA [Suspect]
     Route: 064
     Dates: start: 20080212, end: 20080707
  5. FOLIC ACID [Concomitant]
     Indication: PREGNANCY
     Route: 064
     Dates: end: 20080707
  6. KEPPRA [Suspect]
     Indication: EPILEPSY
     Route: 064
     Dates: end: 20080212
  7. CYMBALTA [Concomitant]
     Indication: ANXIETY
     Route: 064
     Dates: end: 20080707

REACTIONS (4)
  - HYPOTONIA [None]
  - MATERNAL EXPOSURE DURING PREGNANCY [None]
  - PREMATURE BABY [None]
  - CONVULSION [None]
